FAERS Safety Report 9432225 (Version 3)
Quarter: 2013Q3

REPORT INFORMATION
  Report Type: Spontaneous
  Country: IT (occurrence: IT)
  Receive Date: 20130731
  Receipt Date: 20130823
  Transmission Date: 20140515
  Serious: Yes (Hospitalization)
  Sender: FDA-Public Use
  Company Number: PHHY2013IT075759

PATIENT
  Sex: Male

DRUGS (1)
  1. GILENYA [Suspect]
     Dosage: 0.5 MG, QD
     Route: 048
     Dates: start: 20111021, end: 20121003

REACTIONS (10)
  - Multiple sclerosis relapse [Recovering/Resolving]
  - Ataxia [Recovering/Resolving]
  - Sensory disturbance [Unknown]
  - Limb discomfort [Not Recovered/Not Resolved]
  - Expanded disability status scale score increased [Unknown]
  - Hemiparesis [Recovering/Resolving]
  - Dysarthria [Not Recovered/Not Resolved]
  - Central nervous system lesion [Not Recovered/Not Resolved]
  - Asthenia [Recovering/Resolving]
  - Gait disturbance [Unknown]
